FAERS Safety Report 18744804 (Version 1)
Quarter: 2021Q1

REPORT INFORMATION
  Report Type: Not Available
  Country: US (occurrence: US)
  Receive Date: 20210115
  Receipt Date: 20210115
  Transmission Date: 20210419
  Serious: No
  Sender: FDA-Public Use
  Company Number: US-NEUROCRINE BIOSCIENCES INC.-2021NBI00146

PATIENT
  Age: 53 Year
  Sex: Female

DRUGS (3)
  1. INGREZZA [Suspect]
     Active Substance: VALBENAZINE
     Indication: TARDIVE DYSKINESIA
     Route: 048
     Dates: start: 20200720, end: 20200727
  2. OXYCODONE [Concomitant]
     Active Substance: OXYCODONE
  3. INGREZZA [Suspect]
     Active Substance: VALBENAZINE
     Route: 048
     Dates: start: 20200728, end: 20210109

REACTIONS (2)
  - Amnesia [Unknown]
  - Anxiety [Unknown]
